FAERS Safety Report 19726224 (Version 1)
Quarter: 2021Q3

REPORT INFORMATION
  Report Type: Spontaneous
  Country: US (occurrence: US)
  Receive Date: 20210819
  Receipt Date: 20210819
  Transmission Date: 20211014
  Serious: No
  Sender: FDA-Public Use
  Company Number: US-PFIZER INC-2021538251

PATIENT
  Age: 75 Year
  Sex: Female
  Weight: 67.59 kg

DRUGS (1)
  1. TOLTERODINE TARTRATE. [Suspect]
     Active Substance: TOLTERODINE TARTRATE
     Dosage: 4 MG, 1X/DAY
     Dates: start: 20190724

REACTIONS (2)
  - Urinary incontinence [Unknown]
  - Drug ineffective [Unknown]
